FAERS Safety Report 10266770 (Version 3)
Quarter: 2014Q3

REPORT INFORMATION
  Report Type: Report from Study
  Country: CA (occurrence: CA)
  Receive Date: 20140630
  Receipt Date: 20140701
  Transmission Date: 20150326
  Serious: Yes (Other)
  Sender: FDA-Public Use
  Company Number: CA-ROCHE-1147416

PATIENT
  Age: 37 Year
  Sex: Female
  Weight: 101 kg

DRUGS (10)
  1. RITUXAN [Suspect]
     Active Substance: RITUXIMAB
     Indication: PRODUCT USED FOR UNKNOWN INDICATION
     Route: 065
  2. MELOXICAM. [Concomitant]
     Active Substance: MELOXICAM
     Indication: HEADACHE
  3. RANITIDINE [Concomitant]
     Active Substance: RANITIDINE\RANITIDINE HYDROCHLORIDE
     Indication: HEADACHE
  4. PREDNISONE. [Concomitant]
     Active Substance: PREDNISONE
     Indication: HEADACHE
  5. METHOTREXATE [Concomitant]
     Active Substance: METHOTREXATE
     Indication: HEADACHE
  6. PARIET [Concomitant]
     Active Substance: RABEPRAZOLE SODIUM
     Indication: HEADACHE
  7. FLUOXETINE [Concomitant]
     Active Substance: FLUOXETINE\FLUOXETINE HYDROCHLORIDE
     Indication: HEADACHE
  8. LOMOTIL (CANADA) [Concomitant]
     Indication: HEADACHE
  9. BOTOX [Concomitant]
     Active Substance: ONABOTULINUMTOXINA
     Indication: HEADACHE
  10. ACTEMRA [Suspect]
     Active Substance: TOCILIZUMAB
     Indication: RHEUMATOID ARTHRITIS
     Route: 042
     Dates: start: 20110413

REACTIONS (3)
  - Cellulitis [Recovering/Resolving]
  - Bone disorder [Unknown]
  - Pruritus [Recovered/Resolved]

NARRATIVE: CASE EVENT DATE: 201209
